FAERS Safety Report 6921751-0 (Version None)
Quarter: 2010Q3

REPORT INFORMATION
  Report Type: 
  Country: None (occurrence: None)
  Receive Date: 20100812
  Receipt Date: 20100805
  Transmission Date: 20110219
  Serious: Yes (Life-Threatening, Other)
  Sender: FDA-Public Use
  Company Number: MX-TEVA-243343ISR

PATIENT
  Age: 82 Year
  Sex: Female

DRUGS (4)
  1. AZILECT [Suspect]
     Indication: PARKINSON'S DISEASE
     Dosage: HALF OF AN AZILECT TABLET PER DAY
     Route: 048
  2. PAROXETINE HCL [Suspect]
  3. CIPROFLOXACIN [Suspect]
  4. EPOGEN [Concomitant]
     Indication: ANAEMIA

REACTIONS (2)
  - CEREBRAL ARTERY EMBOLISM [None]
  - DRUG INTERACTION [None]
